FAERS Safety Report 4805575-6 (Version None)
Quarter: 2005Q4

REPORT INFORMATION
  Report Type: 
  Country: None (occurrence: None)
  Receive Date: 20051018
  Receipt Date: 20051003
  Transmission Date: 20060501
  Serious: Yes (Death, Hospitalization, Other)
  Sender: FDA-Public Use
  Company Number: 2005BI011725

PATIENT
  Age: 86 Year
  Sex: Male
  Weight: 66.6788 kg

DRUGS (8)
  1. AMEVIVE [Suspect]
     Indication: PSORIASIS
     Dosage: SEE IMAGE
     Route: 030
     Dates: end: 20050112
  2. AMEVIVE [Suspect]
     Indication: PSORIASIS
     Dosage: SEE IMAGE
     Route: 030
     Dates: start: 20031009
  3. METHOTREXATE [Concomitant]
  4. FENTANYL [Concomitant]
  5. MULTI-VITAMINS [Concomitant]
  6. HYDROCODONE [Concomitant]
  7. TREXAL [Concomitant]
  8. . [Concomitant]

REACTIONS (20)
  - ASTHENIA [None]
  - CARDIO-RESPIRATORY ARREST [None]
  - CONFUSIONAL STATE [None]
  - DECUBITUS ULCER [None]
  - DEHYDRATION [None]
  - DENTAL EXAMINATION ABNORMAL [None]
  - DYSPNOEA [None]
  - ESCHERICHIA INFECTION [None]
  - GENERAL PHYSICAL HEALTH DETERIORATION [None]
  - HYPERBILIRUBINAEMIA [None]
  - MOUTH HAEMORRHAGE [None]
  - MYELODYSPLASTIC SYNDROME [None]
  - OVERDOSE [None]
  - PANCYTOPENIA [None]
  - PIGMENTATION DISORDER [None]
  - PYREXIA [None]
  - RASH MACULAR [None]
  - SEPSIS [None]
  - SEPTIC SHOCK [None]
  - URINARY TRACT INFECTION [None]
